FAERS Safety Report 17980826 (Version 1)
Quarter: 2020Q3

REPORT INFORMATION
  Report Type: Spontaneous
  Country: CA (occurrence: CA)
  Receive Date: 20200704
  Receipt Date: 20200704
  Transmission Date: 20201103
  Serious: Yes (Life-Threatening)
  Sender: FDA-Public Use
  Company Number: CA-ACCORD-188345

PATIENT
  Sex: Female

DRUGS (5)
  1. METHOTREXATE. [Suspect]
     Active Substance: METHOTREXATE
     Indication: RHEUMATOID ARTHRITIS
  2. REMICADE [Suspect]
     Active Substance: INFLIXIMAB
     Indication: PRODUCT USED FOR UNKNOWN INDICATION
  3. RITUXIMAB. [Suspect]
     Active Substance: RITUXIMAB
     Indication: PRODUCT USED FOR UNKNOWN INDICATION
  4. GOLD [Suspect]
     Active Substance: GOLD
     Indication: PRODUCT USED FOR UNKNOWN INDICATION
  5. HUMIRA [Suspect]
     Active Substance: ADALIMUMAB
     Indication: RHEUMATOID ARTHRITIS
     Dosage: SOLUTION SUBCUTANEOUS
     Route: 058

REACTIONS (9)
  - Musculoskeletal disorder [Unknown]
  - Therapeutic product effect decreased [Unknown]
  - Vocal cord dysfunction [Unknown]
  - Dysphonia [Unknown]
  - Hypophagia [Unknown]
  - Malaise [Unknown]
  - Myocardial infarction [Unknown]
  - Drug ineffective [Unknown]
  - Gastric disorder [Unknown]
